FAERS Safety Report 5694723-4 (Version None)
Quarter: 2008Q2

REPORT INFORMATION
  Report Type: 
  Country: None (occurrence: None)
  Receive Date: 20080404
  Receipt Date: 20080403
  Transmission Date: 20081010
  Serious: Yes (Hospitalization, Other)
  Sender: FDA-Public Use
  Company Number: D0056502A

PATIENT
  Age: 67 Year
  Sex: Male

DRUGS (6)
  1. ZOVIRAX [Suspect]
     Indication: HERPES ZOSTER
     Route: 042
     Dates: start: 20070109, end: 20070123
  2. VALORON [Concomitant]
     Route: 048
  3. NEURONTIN [Concomitant]
     Route: 048
  4. BRONCHORETARD [Concomitant]
     Route: 048
  5. CREON [Concomitant]
     Route: 048
  6. OTHER MEDICATIONS [Concomitant]
     Route: 065

REACTIONS (3)
  - COMPARTMENT SYNDROME [None]
  - INFUSION SITE EXTRAVASATION [None]
  - INFUSION SITE SWELLING [None]
